FAERS Safety Report 23954496 (Version 1)
Quarter: 2024Q2

REPORT INFORMATION
  Report Type: Spontaneous
  Country: US (occurrence: None)
  Receive Date: 20240610
  Receipt Date: 20240610
  Transmission Date: 20240716
  Serious: No
  Sender: FDA-Public Use
  Company Number: US-ROCHE-3390184

PATIENT

DRUGS (4)
  1. PERTUZUMAB [Suspect]
     Active Substance: PERTUZUMAB
     Indication: Breast cancer female
     Route: 065
  2. IBRANCE [Concomitant]
     Active Substance: PALBOCICLIB
     Dosage: ADMINISTER ON DAYS 1 THROUGH 21 OF A 28-DAY TREATMENT CYCLE
     Route: 048
  3. ARIMIDEX [Concomitant]
     Active Substance: ANASTROZOLE
  4. PACLITAXEL [Concomitant]
     Active Substance: PACLITAXEL

REACTIONS (3)
  - Drug hypersensitivity [Unknown]
  - Dyspnoea [Unknown]
  - Oedema peripheral [Unknown]
